FAERS Safety Report 24422796 (Version 1)
Quarter: 2024Q4

REPORT INFORMATION
  Report Type: Report from Study
  Country: US (occurrence: US)
  Receive Date: 20241010
  Receipt Date: 20241010
  Transmission Date: 20250115
  Serious: Yes (Hospitalization, Other)
  Sender: GILEAD
  Company Number: US-GILEAD-2024-0690511

PATIENT
  Sex: Female

DRUGS (1)
  1. AZTREONAM LYSINE [Suspect]
     Active Substance: AZTREONAM LYSINE
     Indication: Cystic fibrosis
     Dosage: 75 MG, TID (EVERY OTHER MONTH)
     Route: 055
     Dates: start: 20150504

REACTIONS (3)
  - Infective pulmonary exacerbation of cystic fibrosis [Unknown]
  - COVID-19 [Unknown]
  - Loss of personal independence in daily activities [Unknown]
